FAERS Safety Report 6164087-0 (Version None)
Quarter: 2009Q2

REPORT INFORMATION
  Report Type: 
  Country: None (occurrence: None)
  Receive Date: 20090422
  Receipt Date: 20090417
  Transmission Date: 20091009
  Serious: Yes (Death, Hospitalization)
  Sender: FDA-Public Use
  Company Number: A0779732A

PATIENT
  Age: 75 Year
  Sex: Male

DRUGS (8)
  1. AVANDIA [Suspect]
     Indication: DIABETES MELLITUS
     Dosage: 2MG TWICE PER DAY
     Route: 048
     Dates: start: 20041113, end: 20060101
  2. AMARYL [Concomitant]
  3. LIPITOR [Concomitant]
  4. ZETIA [Concomitant]
  5. PAROXETINE HCL [Concomitant]
  6. PROSCAR [Concomitant]
  7. LEVAQUIN [Concomitant]
  8. RANITIDINE [Concomitant]

REACTIONS (1)
  - MYOCARDIAL INFARCTION [None]
